FAERS Safety Report 11932793 (Version 2)
Quarter: 2016Q1

REPORT INFORMATION
  Report Type: Spontaneous
  Country: PL (occurrence: PL)
  Receive Date: 20160120
  Receipt Date: 20160219
  Transmission Date: 20160526
  Serious: Yes (Hospitalization, Other)
  Sender: FDA-Public Use
  Company Number: PL-ABBVIE-16P-129-1538024-00

PATIENT
  Age: 53 Year
  Sex: Female
  Weight: 71 kg

DRUGS (3)
  1. VIEKIRAX [Suspect]
     Active Substance: OMBITASVIR\PARITAPREVIR\RITONAVIR
     Indication: CHRONIC HEPATITIS C
     Route: 048
  2. FURAGINUM [Concomitant]
     Indication: URINARY TRACT INFECTION
     Route: 065
  3. EXVIERA [Suspect]
     Active Substance: DASABUVIR
     Indication: CHRONIC HEPATITIS C
     Route: 048

REACTIONS (15)
  - Pyrexia [Recovered/Resolved]
  - Bacterial infection [Recovered/Resolved]
  - Dysuria [Not Recovered/Not Resolved]
  - Urinary tract infection [Recovering/Resolving]
  - Chills [Unknown]
  - Food poisoning [Recovered/Resolved]
  - Asthenia [Recovered/Resolved]
  - Hepatic cyst [Unknown]
  - C-reactive protein increased [Recovered/Resolved]
  - Cough [Unknown]
  - Protein total abnormal [Recovered/Resolved]
  - Vomiting [Recovered/Resolved]
  - Sciatica [Unknown]
  - Dehydration [Recovered/Resolved]
  - Diarrhoea [Recovered/Resolved]

NARRATIVE: CASE EVENT DATE: 20160109
